FAERS Safety Report 22641191 (Version 1)
Quarter: 2023Q2

REPORT INFORMATION
  Report Type: Spontaneous
  Country: US (occurrence: US)
  Receive Date: 20230626
  Receipt Date: 20230626
  Transmission Date: 20230721
  Serious: Yes (Death, Hospitalization, Other)
  Sender: FDA-Public Use
  Company Number: US-INSUD PHARMA-2306US04024

PATIENT

DRUGS (3)
  1. LANSOPRAZOLE [Suspect]
     Active Substance: LANSOPRAZOLE
     Indication: Helicobacter gastritis
     Dosage: 30 MG TWICE A DAY, ONLY COMPLETED 10 OF 14 DAYS
     Route: 065
  2. AMOXICILLIN [Suspect]
     Active Substance: AMOXICILLIN
     Indication: Helicobacter gastritis
     Dosage: 500 MG TWICE A DAY, ONLY COMPLETED 10 OF 14 DAYS
     Route: 065
  3. CLARITHROMYCIN [Suspect]
     Active Substance: CLARITHROMYCIN
     Indication: Helicobacter gastritis
     Dosage: 500 MG TWICE A DAY, ONLY COMPLETED 10 OF 14 DAYS
     Route: 065

REACTIONS (15)
  - Warm autoimmune haemolytic anaemia [Unknown]
  - Pulmonary embolism [Fatal]
  - Cardiac arrest [Fatal]
  - Abdominal pain upper [Unknown]
  - Dysgeusia [Unknown]
  - Dry mouth [Unknown]
  - Abdominal tenderness [Unknown]
  - Leukocytosis [Unknown]
  - Anaemia macrocytic [Unknown]
  - Dyspnoea [Unknown]
  - Jugular vein distension [Unknown]
  - Rales [Unknown]
  - Hypoxia [Unknown]
  - Hypotension [Unknown]
  - Bradycardia [Unknown]
